FAERS Safety Report 7537198-2 (Version None)
Quarter: 2011Q2

REPORT INFORMATION
  Report Type: 
  Country: None (occurrence: None)
  Receive Date: 20110609
  Receipt Date: 20110417
  Transmission Date: 20111010
  Serious: Yes (Death, Hospitalization)
  Sender: FDA-Public Use
  Company Number: US-BAYER-2011-033031

PATIENT
  Age: 57 Year
  Sex: Female

DRUGS (8)
  1. SORAFENIB (RAF KINASE INHIBITOR) [Suspect]
     Indication: HEPATIC NEOPLASM MALIGNANT
     Dosage: 200 MG, BID
     Dates: start: 20110409
  2. DIOVAN [Concomitant]
     Dosage: 40 MG, UNK
  3. TRANXENE-T [Concomitant]
     Dosage: 3.75 MG, UNK
  4. HYDROCODONE BITARTRATE AND ACETAMINOPHEN [Concomitant]
     Dosage: 5-325 MG
  5. LORAZEPAM [Concomitant]
     Dosage: 0.5 MG, UNK
  6. LAXATIVE [Concomitant]
  7. MULTI-VITAMINS [Concomitant]
  8. MEPERIDINE [Concomitant]
     Dosage: 50 MG, UNK

REACTIONS (6)
  - CONSTIPATION [None]
  - HEADACHE [None]
  - DEHYDRATION [None]
  - NAUSEA [None]
  - HYPOTENSION [None]
  - DEATH [None]
